FAERS Safety Report 22016387 (Version 1)
Quarter: 2023Q1

REPORT INFORMATION
  Report Type: Report from Study
  Country: US (occurrence: US)
  Receive Date: 20230221
  Receipt Date: 20230221
  Transmission Date: 20230417
  Serious: Yes (Death, Hospitalization)
  Sender: FDA-Public Use
  Company Number: US-MYLANLABS-2023M1018866

PATIENT
  Age: 56 Year
  Sex: Male

DRUGS (4)
  1. INSULIN NOS [Suspect]
     Active Substance: INSULIN NOS
     Indication: Product used for unknown indication
     Dosage: UNK
     Route: 065
  2. OCTREOTIDE [Suspect]
     Active Substance: OCTREOTIDE
     Indication: Toxicity to various agents
     Dosage: UNK
     Route: 065
  3. GLUCAGON [Suspect]
     Active Substance: GLUCAGON
     Indication: Toxicity to various agents
     Dosage: UNK
     Route: 065
  4. DEXTROSE [Suspect]
     Active Substance: DEXTROSE
     Indication: Toxicity to various agents
     Dosage: UNK; MORE THAN 5%
     Route: 065

REACTIONS (8)
  - Toxicity to various agents [Fatal]
  - Brain death [Fatal]
  - Coma [Fatal]
  - Respiratory depression [Fatal]
  - Hypoglycaemia [Fatal]
  - Seizure [Fatal]
  - Drug ineffective for unapproved indication [Fatal]
  - Off label use [Unknown]
